FAERS Safety Report 4644497-0 (Version None)
Quarter: 2005Q2

REPORT INFORMATION
  Report Type: 
  Country: None (occurrence: None)
  Receive Date: 20050422
  Receipt Date: 20050422
  Transmission Date: 20051028
  Serious: Yes (Hospitalization)
  Sender: FDA-Public Use
  Company Number: None

PATIENT
  Sex: Male
  Weight: 101.6057 kg

DRUGS (14)
  1. WELLBUTRIN [Suspect]
     Indication: POST-TRAUMATIC STRESS DISORDER
     Dosage: 150 BID
     Dates: start: 20050209, end: 20050414
  2. BUPROPION HCL [Concomitant]
  3. VICODIN [Concomitant]
  4. LEVOTHYROXINE SODIUM [Concomitant]
  5. ACETAMINOPHEN [Concomitant]
  6. ALBUTEROL [Concomitant]
  7. DIPHENHYDRAMINE HCL [Concomitant]
  8. HYDROCHLOROTHIAZIDE [Concomitant]
  9. ASPIRIN [Concomitant]
  10. LISINOPRIL [Concomitant]
  11. SIMVASTATIN [Concomitant]
  12. CYCLOBENZAPRINE HCL [Concomitant]
  13. TRAZODONE HCL [Concomitant]
  14. FELODIPINE [Concomitant]

REACTIONS (3)
  - ABDOMINAL PAIN UPPER [None]
  - HAEMATEMESIS [None]
  - ULCER HAEMORRHAGE [None]
